FAERS Safety Report 6130187-4 (Version None)
Quarter: 2009Q1

REPORT INFORMATION
  Report Type: 
  Country: None (occurrence: None)
  Receive Date: 20090324
  Receipt Date: 20090320
  Transmission Date: 20090719
  Serious: Yes (Hospitalization)
  Sender: FDA-Public Use
  Company Number: US-BRISTOL-MYERS SQUIBB COMPANY-14542856

PATIENT
  Age: 68 Year
  Sex: Male
  Weight: 65 kg

DRUGS (3)
  1. CISPLATIN [Suspect]
     Indication: PHARYNGEAL CANCER STAGE UNSPECIFIED
     Dosage: THERAPY START DATE: 30DEC08.
     Route: 042
     Dates: start: 20090126, end: 20090126
  2. ERBITUX [Suspect]
     Indication: PHARYNGEAL CANCER STAGE UNSPECIFIED
     Dosage: THERAPY START DATE: 30DEC08.
     Route: 042
     Dates: start: 20090216, end: 20090216
  3. RADIATION THERAPY [Suspect]
     Indication: PHARYNGEAL CANCER STAGE UNSPECIFIED
     Dosage: 1 DOSAGE FORM = 7000CGY; NUMBER OF FRACTIONS: 35; NUMBER OF ELAPSED DAYS: 2
     Dates: start: 20090218, end: 20090218

REACTIONS (9)
  - COUGH [None]
  - DEHYDRATION [None]
  - DYSPNOEA [None]
  - HAEMOGLOBIN ABNORMAL [None]
  - LYMPHOPENIA [None]
  - PLEURAL EFFUSION [None]
  - PNEUMONIA [None]
  - PYREXIA [None]
  - WEIGHT DECREASED [None]
